FAERS Safety Report 13628642 (Version 1)
Quarter: 2017Q2

REPORT INFORMATION
  Report Type: Report from Study
  Country: US (occurrence: US)
  Receive Date: 20170608
  Receipt Date: 20170608
  Transmission Date: 20170830
  Serious: Yes (Death)
  Sender: FDA-Public Use
  Company Number: US-BAYER-2017-048241

PATIENT
  Age: 63 Year
  Sex: Female

DRUGS (3)
  1. ADEMPAS [Suspect]
     Active Substance: RIOCIGUAT
     Indication: PULMONARY ARTERIAL HYPERTENSION
     Dosage: 2 MG, TID
     Route: 048
     Dates: start: 20161230
  2. ADEMPAS [Suspect]
     Active Substance: RIOCIGUAT
     Indication: PULMONARY ARTERIAL HYPERTENSION
     Dosage: UNK
  3. ADEMPAS [Suspect]
     Active Substance: RIOCIGUAT
     Indication: PULMONARY ARTERIAL HYPERTENSION
     Dosage: 1.5 MG, TID
     Route: 048
     Dates: start: 20161229, end: 20170525

REACTIONS (10)
  - Death [Fatal]
  - Complication associated with device [None]
  - Nodule [None]
  - Vomiting [Not Recovered/Not Resolved]
  - Malaise [None]
  - Nausea [None]
  - Dizziness [None]
  - Localised oedema [None]
  - Headache [None]
  - Headache [None]

NARRATIVE: CASE EVENT DATE: 201703
